FAERS Safety Report 9758090 (Version 2)
Quarter: 2014Q1

REPORT INFORMATION
  Report Type: Spontaneous
  Country: TR (occurrence: TR)
  Receive Date: 20131216
  Receipt Date: 20140103
  Transmission Date: 20141002
  Serious: Yes (Other)
  Sender: FDA-Public Use
  Company Number: TR-JNJFOC-20131205406

PATIENT
  Sex: Male
  Weight: 80 kg

DRUGS (6)
  1. XARELTO [Suspect]
     Indication: PRODUCT USED FOR UNKNOWN INDICATION
     Route: 048
  2. DAROB [Suspect]
     Indication: HYPERLIPIDAEMIA
     Route: 065
  3. DAROB [Suspect]
     Indication: ATRIAL FIBRILLATION
     Route: 065
  4. ASPIRIN [Concomitant]
     Indication: CORONARY ARTERY DISEASE
     Route: 065
  5. TIABENDAZOLE [Concomitant]
     Indication: CORONARY ARTERY DISEASE
     Route: 065
  6. TIABENDAZOLE [Concomitant]
     Indication: HYPERLIPIDAEMIA
     Route: 065

REACTIONS (2)
  - Haemorrhage [Unknown]
  - Colon operation [Unknown]
